FAERS Safety Report 4320907-3 (Version None)
Quarter: 2004Q1

REPORT INFORMATION
  Report Type: 
  Country: None (occurrence: None)
  Receive Date: 20040318
  Receipt Date: 20040302
  Transmission Date: 20041129
  Serious: Yes (Other)
  Sender: FDA-Public Use
  Company Number: 193539

PATIENT
  Age: 51 Year
  Sex: Female
  Weight: 70.3075 kg

DRUGS (9)
  1. AVONEX [Suspect]
     Indication: MULTIPLE SCLEROSIS
     Dosage: 15 MG QW IM
     Route: 030
     Dates: start: 20010101, end: 20010101
  2. AVONEX [Suspect]
     Indication: MULTIPLE SCLEROSIS
     Dosage: 30 MCG QW IM
     Route: 030
     Dates: start: 20010101, end: 20031201
  3. AVONEX [Suspect]
     Indication: MULTIPLE SCLEROSIS
     Dosage: 30 MCG QW IM
     Route: 030
     Dates: start: 20031201, end: 20040201
  4. ACTOS [Concomitant]
  5. ACIPHEX [Concomitant]
  6. LIPITOR [Concomitant]
  7. DURAGESIC [Concomitant]
  8. MS CONTIN [Concomitant]
  9. ESTRATEST [Concomitant]

REACTIONS (2)
  - BREAST CANCER FEMALE [None]
  - INSOMNIA [None]
